FAERS Safety Report 8694896 (Version 2)
Quarter: 2013Q1

REPORT INFORMATION
  Report Type: Spontaneous
  Country: US (occurrence: US)
  Receive Date: 20120731
  Receipt Date: 20130220
  Transmission Date: 20140127
  Serious: Yes (Other)
  Sender: FDA-Public Use
  Company Number: PHEH2012US014772

PATIENT
  Sex: Male

DRUGS (2)
  1. EXFORGE HCT [Suspect]
     Dosage: 1 DF (320 MG VALS/10 MG AMLO/25 MG HCTZ), QD
     Route: 048
  2. METFORMIN [Concomitant]
     Dosage: UNK UKN, UNK

REACTIONS (3)
  - Ankle fracture [Unknown]
  - Hernia [Unknown]
  - Blood pressure decreased [Unknown]
